FAERS Safety Report 8839852 (Version 1)
Quarter: 2012Q4

REPORT INFORMATION
  Report Type: 
  Country: US (occurrence: US)
  Receive Date: 20121015
  Receipt Date: 20121015
  Transmission Date: 20130627
  Serious: No
  Sender: FDA-Public Use
  Company Number: US-BRISTOL-MYERS SQUIBB COMPANY-16819237

PATIENT
  Age: 79 Year
  Sex: Male
  Weight: 83 kg

DRUGS (2)
  1. KENALOG-40 INJ [Suspect]
     Indication: BACK PAIN
     Dosage: 1df=12-14 inj
     Route: 008
  2. KENALOG-40 INJ [Suspect]
     Indication: SPINAL PAIN
     Dosage: 1df=12-14 inj
     Route: 008

REACTIONS (5)
  - Extrasystoles [Unknown]
  - Dizziness [Unknown]
  - Dyspnoea [Unknown]
  - Vision blurred [Unknown]
  - Muscular weakness [Unknown]
